FAERS Safety Report 7775684-0 (Version None)
Quarter: 2011Q3

REPORT INFORMATION
  Report Type: 
  Country: None (occurrence: None)
  Receive Date: 20110923
  Receipt Date: 20110914
  Transmission Date: 20111222
  Serious: Yes (Hospitalization, Other)
  Sender: FDA-Public Use
  Company Number: CA-GLAXOSMITHKLINE-A0945395A

PATIENT
  Sex: Male
  Weight: 104.5 kg

DRUGS (13)
  1. CARVEDILOL [Concomitant]
     Indication: LEFT VENTRICULAR DYSFUNCTION
     Dosage: 12.5MG TWICE PER DAY
     Route: 048
     Dates: start: 20100303, end: 20100523
  2. COLCHICINE [Concomitant]
     Indication: GOUT
     Dosage: .6MG THREE TIMES PER WEEK
     Route: 048
     Dates: start: 20090101, end: 20100503
  3. VITAMIN K TAB [Concomitant]
     Indication: VITAMIN K
     Dosage: 5MG SINGLE DOSE
     Route: 048
     Dates: start: 20100504, end: 20100504
  4. HEPARIN [Concomitant]
     Indication: PROPHYLAXIS
     Route: 042
  5. SYNTHROID [Concomitant]
     Indication: HYPOTHYROIDISM
     Dosage: .088MG PER DAY
     Route: 048
     Dates: start: 20100422
  6. FLOVENT [Concomitant]
     Indication: ASTHMA
     Dosage: 2PUFF TWICE PER DAY
     Route: 055
     Dates: start: 20090101, end: 20100512
  7. ATROPINE [Concomitant]
     Indication: BRADYCARDIA
     Route: 042
     Dates: start: 20100504, end: 20100504
  8. LIPITOR [Concomitant]
     Indication: HYPERLIPIDAEMIA
     Dosage: 40MG PER DAY
     Route: 048
     Dates: start: 20100303, end: 20100523
  9. ATACAND [Concomitant]
     Indication: LEFT VENTRICULAR DYSFUNCTION
     Dosage: 8MG PER DAY
     Route: 048
     Dates: start: 20100318
  10. ADVAIR DISKUS 100/50 [Suspect]
     Indication: ASTHMA
     Dosage: 1PUFF PER DAY
     Route: 055
     Dates: start: 20100512, end: 20100525
  11. VENTOLIN HFA [Concomitant]
     Indication: ASTHMA
     Dosage: 2PUFF AS REQUIRED
     Route: 055
     Dates: start: 19950101
  12. TYLENOL W/ CODEINE NO. 3 [Concomitant]
     Indication: PAIN MANAGEMENT
     Dosage: 1UNIT SINGLE DOSE
     Dates: start: 20100506, end: 20100506
  13. BLINDED THERAPY [Concomitant]
     Indication: THROMBOSIS PROPHYLAXIS
     Dates: start: 20100308, end: 20100523

REACTIONS (9)
  - ALLERGIC GRANULOMATOUS ANGIITIS [None]
  - HYPERSENSITIVITY [None]
  - INTERNATIONAL NORMALISED RATIO INCREASED [None]
  - RASH MACULO-PAPULAR [None]
  - PYREXIA [None]
  - RASH PRURITIC [None]
  - DYSURIA [None]
  - BLOOD CREATININE INCREASED [None]
  - DYSPNOEA [None]
